FAERS Safety Report 4964344-7 (Version None)
Quarter: 2006Q2

REPORT INFORMATION
  Report Type: 
  Country: None (occurrence: None)
  Receive Date: 20060406
  Receipt Date: 20060331
  Transmission Date: 20061013
  Serious: Yes (Other)
  Sender: FDA-Public Use
  Company Number: US-BRISTOL-MYERS SQUIBB COMPANY-13333208

PATIENT
  Age: 41 Year
  Sex: Male
  Weight: 77 kg

DRUGS (5)
  1. SUSTIVA [Suspect]
     Indication: HIV INFECTION
     Dates: start: 20040101
  2. STAVUDINE [Concomitant]
  3. EPIVIR [Concomitant]
  4. LAMIVUDINE [Concomitant]
  5. ZIDOVUDINE [Concomitant]

REACTIONS (2)
  - HEPATITIS C [None]
  - PANCREATIC ATROPHY [None]
